FAERS Safety Report 7692226-9 (Version None)
Quarter: 2011Q3

REPORT INFORMATION
  Report Type: 
  Country: None (occurrence: None)
  Receive Date: 20110818
  Receipt Date: 20110728
  Transmission Date: 20111222
  Serious: Yes (Death, Other)
  Sender: FDA-Public Use
  Company Number: PHHO2011FR13582

PATIENT
  Sex: Male

DRUGS (13)
  1. SANDOSTATIN [Suspect]
     Indication: CONSTIPATION
     Dosage: 300 UG, QD
     Route: 042
     Dates: start: 20110719
  2. FLAGYL [Concomitant]
     Dosage: UNK
     Dates: start: 20110621
  3. DEXCHLORPHENIRAMINE MALEATE [Concomitant]
     Dosage: 1 AMPULE QD
     Route: 042
     Dates: start: 20110722, end: 20110726
  4. PREGABALIN [Suspect]
     Indication: NEURALGIA
     Dosage: 50 MG, QD
     Route: 048
     Dates: start: 20110718, end: 20110721
  5. DACARBAZINE [Concomitant]
     Indication: MALIGNANT MELANOMA
     Dosage: UNK
     Dates: start: 20110601, end: 20110704
  6. BACTRIM [Concomitant]
     Dosage: UNK
     Dates: start: 20110710
  7. ACUPAN [Concomitant]
     Dosage: UNK
     Dates: start: 20110620
  8. ACETAMINOPHEN [Concomitant]
     Dosage: UNK
     Dates: start: 20110620
  9. OXYCODONE HCL [Concomitant]
     Dosage: UNK
     Dates: start: 20110722
  10. CIPROFLOXACIN [Concomitant]
     Dosage: UNK
     Dates: start: 20110718
  11. IPILIMUMAB [Suspect]
     Indication: METASTATIC MALIGNANT MELANOMA
     Dosage: 3 MG, UNK
     Route: 042
     Dates: start: 20110624, end: 20110626
  12. AMITRIPTYLINE HCL [Concomitant]
     Dosage: UNK
     Dates: start: 20110723
  13. SPASFON [Concomitant]
     Dosage: UNK
     Dates: start: 20110623

REACTIONS (6)
  - URTICARIA [None]
  - CONSTIPATION [None]
  - HEPATITIS CHOLESTATIC [None]
  - CYTOLYTIC HEPATITIS [None]
  - GENERAL PHYSICAL HEALTH DETERIORATION [None]
  - NEOPLASM MALIGNANT [None]
